FAERS Safety Report 16428435 (Version 1)
Quarter: 2019Q2

REPORT INFORMATION
  Report Type: Spontaneous
  Country: US (occurrence: US)
  Receive Date: 20190506
  Receipt Date: 20190506
  Transmission Date: 20190711
  Serious: Yes (Life-Threatening, Hospitalization)
  Sender: FDA-Public Use
  Company Number: None

PATIENT
  Age: 59 Year
  Sex: Male
  Weight: 78 kg

DRUGS (1)
  1. ENOXAPARIN [Suspect]
     Active Substance: ENOXAPARIN
     Indication: DEEP VEIN THROMBOSIS
     Route: 058
     Dates: start: 20190416, end: 20190417

REACTIONS (10)
  - Cellulitis [None]
  - Gastric haemorrhage [None]
  - Pain in extremity [None]
  - Oesophagitis [None]
  - Gastric ulcer [None]
  - Anaemia [None]
  - Hypotension [None]
  - Septic shock [None]
  - Presyncope [None]
  - Packed red blood cell transfusion [None]

NARRATIVE: CASE EVENT DATE: 20190416
